FAERS Safety Report 4931988-8 (Version None)
Quarter: 2006Q1

REPORT INFORMATION
  Report Type: 
  Country: None (occurrence: None)
  Receive Date: 20060303
  Receipt Date: 20060301
  Transmission Date: 20060701
  Serious: Yes (Hospitalization)
  Sender: FDA-Public Use
  Company Number: 187

PATIENT
  Age: 69 Year
  Sex: Male
  Weight: 69 kg

DRUGS (2)
  1. MELPHALAN [Suspect]
     Indication: MULTIPLE MYELOMA
     Dosage: 248MG SINGLE DOSE
     Route: 042
     Dates: start: 20060126
  2. GLYBURIDE [Concomitant]
     Indication: HYPERGLYCAEMIA
     Dosage: 5MG TWICE PER DAY
     Route: 048
     Dates: end: 20060205

REACTIONS (1)
  - HYPOGLYCAEMIA [None]
